FAERS Safety Report 13954364 (Version 1)
Quarter: 2017Q3

REPORT INFORMATION
  Report Type: Spontaneous
  Country: US (occurrence: US)
  Receive Date: 20170909
  Receipt Date: 20170909
  Transmission Date: 20171128
  Serious: Yes (Hospitalization)
  Sender: FDA-Public Use
  Company Number: None

PATIENT
  Age: 72 Year
  Sex: Male
  Weight: 69.75 kg

DRUGS (11)
  1. ATORVASTATIN [Concomitant]
     Active Substance: ATORVASTATIN
  2. CPAP MACHINE [Concomitant]
  3. NP THYROID 30 [Suspect]
     Active Substance: LEVOTHYROXINE\LIOTHYRONINE
     Indication: HYPOTHYROIDISM
     Dosage: ?          QUANTITY:1 TABLET(S);?
     Route: 048
     Dates: start: 20170821, end: 20170904
  4. THYROID [Concomitant]
     Active Substance: LEVOTHYROXINE\LIOTHYRONINE
  5. EMSAM (SELEGILINE) [Concomitant]
  6. LO-DOSE ASPIRIN [Concomitant]
  7. BLOOD GLUCOSE METER [Concomitant]
  8. ABILIFY [Concomitant]
     Active Substance: ARIPIPRAZOLE
  9. LANTUS SOLOSTAR [Concomitant]
     Active Substance: INSULIN GLARGINE
  10. CLONAZEPAM. [Concomitant]
     Active Substance: CLONAZEPAM
  11. METFORMIIN [Concomitant]

REACTIONS (7)
  - Dizziness [None]
  - Dysarthria [None]
  - Hypoaesthesia oral [None]
  - Disorientation [None]
  - Hypoaesthesia [None]
  - Feeling abnormal [None]
  - Product substitution issue [None]

NARRATIVE: CASE EVENT DATE: 20170823
